FAERS Safety Report 6433349-1 (Version None)
Quarter: 2009Q4

REPORT INFORMATION
  Report Type: 
  Country: None (occurrence: None)
  Receive Date: 20091105
  Receipt Date: 20091026
  Transmission Date: 20100525
  Serious: Yes (Other)
  Sender: FDA-Public Use
  Company Number: B0601154B

PATIENT
  Sex: Female

DRUGS (10)
  1. ZIDOVUDINE [Suspect]
     Indication: PROPHYLAXIS AGAINST HIV INFECTION
  2. LAMIVUDINE [Suspect]
     Indication: PROPHYLAXIS AGAINST HIV INFECTION
  3. NELFINAVIR MESYLATE [Suspect]
     Indication: PROPHYLAXIS AGAINST HIV INFECTION
  4. EFAVIRENZ [Suspect]
     Indication: PROPHYLAXIS AGAINST HIV INFECTION
  5. STAVUDINE [Suspect]
     Indication: HIV INFECTION
  6. EPIVIR [Suspect]
     Indication: HIV INFECTION
  7. LOPINAVIR AND RITONAVIR [Suspect]
     Indication: HIV INFECTION
  8. PYRIMETHAMINE TAB [Concomitant]
  9. SULPHADIAZINE [Concomitant]
  10. CALCIUM FOLINATE [Concomitant]

REACTIONS (13)
  - CAESAREAN SECTION [None]
  - CALCINOSIS [None]
  - CHORIORETINITIS [None]
  - DEVELOPMENTAL DELAY [None]
  - ENCEPHALOPATHY [None]
  - EYE INFECTION TOXOPLASMAL [None]
  - FAILURE TO THRIVE [None]
  - HAEMORRHAGE INTRACRANIAL [None]
  - HEMIPARESIS [None]
  - HIV INFECTION [None]
  - MATERNAL DRUGS AFFECTING FOETUS [None]
  - PREMATURE BABY [None]
  - STRABISMUS [None]
